FAERS Safety Report 5476516-6 (Version None)
Quarter: 2007Q3

REPORT INFORMATION
  Report Type: 
  Country: None (occurrence: None)
  Receive Date: 20070924
  Receipt Date: 20070507
  Transmission Date: 20080115
  Serious: Yes (Other)
  Sender: FDA-Public Use
  Company Number: PHEH2007US02852

PATIENT
  Age: 55 Year
  Sex: Female

DRUGS (9)
  1. FEMARA [Suspect]
     Indication: BREAST CANCER IN SITU
     Dosage: 2.5 MG, QD, ORAL
     Route: 048
     Dates: start: 20061001
  2. MAGNESIUM (MAGNESIUM) [Concomitant]
  3. CALCIUM (CALCIUM) [Concomitant]
  4. ALBUTEROL [Concomitant]
  5. EPIPEN [Concomitant]
  6. ZELNORM/USA/ (TEGASEROD) [Concomitant]
  7. PRILOSEC [Concomitant]
  8. BENADRYL ^PFIZER WARNER-LAMBERT^ (DIPHENHYDRAMINE HYDROCHLORIDE) [Concomitant]
  9. SINGULAIR [Concomitant]

REACTIONS (7)
  - ARTHRALGIA [None]
  - BLOOD PRESSURE INCREASED [None]
  - FATIGUE [None]
  - HEADACHE [None]
  - HOT FLUSH [None]
  - MUSCLE SPASMS [None]
  - MYALGIA [None]
